FAERS Safety Report 5033613-7 (Version None)
Quarter: 2006Q2

REPORT INFORMATION
  Report Type: 
  Country: None (occurrence: None)
  Receive Date: 20060518
  Receipt Date: 20050414
  Transmission Date: 20061013
  Serious: Yes (Other)
  Sender: FDA-Public Use
  Company Number: 2005062167

PATIENT
  Sex: Female
  Weight: 58.9676 kg

DRUGS (2)
  1. DEPO-PROVERA [Suspect]
     Indication: CONTRACEPTION
     Dosage: (EVERY 3 WEEKS), INTRAMUSCULAR
     Route: 030
     Dates: start: 19970101, end: 20050201
  2. CECLOR [Concomitant]

REACTIONS (1)
  - BONE DENSITY DECREASED [None]
